FAERS Safety Report 8407290 (Version 2)
Quarter: 2012Q4

REPORT INFORMATION
  Report Type: 
  Country: US (occurrence: US)
  Receive Date: 20120215
  Receipt Date: 20121120
  Transmission Date: 20130627
  Serious: Yes (Hospitalization, Other)
  Sender: FDA-Public Use
  Company Number: US-PFIZER INC-2012037188

PATIENT
  Age: 52 Year
  Sex: Female
  Weight: 109 kg

DRUGS (3)
  1. LYRICA [Suspect]
     Indication: REFLEX SYMPATHETIC DYSTROPHY
     Dosage: 150 mg, 2x/day
     Route: 048
     Dates: start: 2010
  2. LYRICA [Suspect]
     Dosage: UNK
  3. SYNTHROID [Suspect]
     Dosage: UNK

REACTIONS (14)
  - Road traffic accident [Unknown]
  - Spinal cord injury [Unknown]
  - Neck injury [Unknown]
  - Fall [Unknown]
  - Eye injury [Unknown]
  - Haemorrhage [Unknown]
  - Tricuspid valve incompetence [Not Recovered/Not Resolved]
  - Amnesia [Unknown]
  - Abdominal distension [Not Recovered/Not Resolved]
  - Oedema peripheral [Not Recovered/Not Resolved]
  - Malaise [Not Recovered/Not Resolved]
  - Contusion [Unknown]
  - Restlessness [Unknown]
  - Migraine [Unknown]
